FAERS Safety Report 8169863-0 (Version None)
Quarter: 2012Q1

REPORT INFORMATION
  Report Type: 
  Country: None (occurrence: None)
  Receive Date: 20120228
  Receipt Date: 20120220
  Transmission Date: 20120608
  Serious: Yes (Other)
  Sender: FDA-Public Use
  Company Number: DK-JNJFOC-20120211394

PATIENT
  Sex: Male
  Weight: 105 kg

DRUGS (2)
  1. IMODIUM [Suspect]
     Route: 048
  2. IMODIUM [Suspect]
     Indication: DIARRHOEA
     Dosage: 2 TABLETS ONCE AND 1 TABLET AFTER 1 HOUR
     Route: 048
     Dates: start: 20111109, end: 20111110

REACTIONS (3)
  - DYSPHAGIA [None]
  - SUFFOCATION FEELING [None]
  - OESOPHAGEAL DISORDER [None]
